FAERS Safety Report 6963772-8 (Version None)
Quarter: 2010Q3

REPORT INFORMATION
  Report Type: 
  Country: None (occurrence: None)
  Receive Date: 20100902
  Receipt Date: 20100825
  Transmission Date: 20110219
  Serious: Yes (Hospitalization)
  Sender: FDA-Public Use
  Company Number: FR-KINGPHARMUSA00001-K201001078

PATIENT
  Age: 87 Year
  Sex: Female

DRUGS (4)
  1. ALTACE [Suspect]
     Dosage: UNK
  2. ALDACTONE [Suspect]
     Indication: ATRIAL FIBRILLATION
     Dosage: 25 MG, QD
     Route: 048
     Dates: start: 20090101
  3. COUMADIN [Suspect]
     Indication: ATRIAL FIBRILLATION
     Dosage: 5 MG, QD
     Route: 048
     Dates: start: 20090101, end: 20090715
  4. LASIX [Concomitant]
     Dosage: 50 MG, QD
     Route: 048

REACTIONS (4)
  - FALL [None]
  - HEAD INJURY [None]
  - MUSCULAR WEAKNESS [None]
  - TRANSIENT ISCHAEMIC ATTACK [None]
